FAERS Safety Report 8796708 (Version 1)
Quarter: 2012Q4

REPORT INFORMATION
  Report Type: 
  Country: US (occurrence: US)
  Receive Date: 20120917
  Receipt Date: 20120917
  Transmission Date: 20130627
  Serious: No
  Sender: FDA-Public Use
  Company Number: US-ABBOTT-11P-163-0856290-00

PATIENT
  Age: 30 Year
  Sex: Female

DRUGS (5)
  1. DEPAKOTE [Suspect]
     Indication: EPILEPSY
     Dates: start: 20110808, end: 20110816
  2. FES04 [Concomitant]
     Indication: ANAEMIA
     Dates: start: 20110731
  3. ERGOCALCIFEROL [Concomitant]
     Indication: VITAMIN D INCREASED
     Dates: start: 20110713
  4. LAMICTAL [Concomitant]
     Indication: EPILEPSY
     Dates: start: 20110314
  5. XANAX [Concomitant]
     Indication: PREMENSTRUAL SYNDROME
     Dates: start: 20100504

REACTIONS (1)
  - Medication residue [Recovered/Resolved]
